FAERS Safety Report 9134931 (Version 1)
Quarter: 2013Q1

REPORT INFORMATION
  Report Type: Spontaneous
  Country: US (occurrence: US)
  Receive Date: 20130304
  Receipt Date: 20130304
  Transmission Date: 20140127
  Serious: No
  Sender: FDA-Public Use
  Company Number: US-ENDO PHARMACEUTICALS INC.-ENDC20120038

PATIENT
  Age: 37 Year
  Sex: Female
  Weight: 81.72 kg

DRUGS (1)
  1. ENDOCET [Suspect]
     Indication: PAIN
     Dosage: 10/650 MG
     Route: 048
     Dates: start: 20120604, end: 20120628

REACTIONS (4)
  - Migraine [Not Recovered/Not Resolved]
  - Oropharyngeal pain [Not Recovered/Not Resolved]
  - Increased upper airway secretion [Not Recovered/Not Resolved]
  - Nausea [Not Recovered/Not Resolved]
